FAERS Safety Report 5076559-0 (Version None)
Quarter: 2006Q3

REPORT INFORMATION
  Report Type: 
  Country: None (occurrence: None)
  Receive Date: 20060807
  Receipt Date: 20060712
  Transmission Date: 20061208
  Serious: Yes (Other)
  Sender: FDA-Public Use
  Company Number: 2006088997

PATIENT
  Age: 51 Year
  Sex: Female
  Weight: 53.6 kg

DRUGS (7)
  1. SILDENAFIL CITRATE [Suspect]
     Indication: PULMONARY HYPERTENSION
     Dosage: 18.75 MG (6.25 MG, 3 IN 1 D), ORAL
     Route: 048
     Dates: start: 20030726
  2. WARFARIN SODIUM [Concomitant]
  3. BERAPROST                    (BERAPROST) [Concomitant]
  4. CALCIUM CARBONATE             (CALCIUM CARBONATE) [Concomitant]
  5. METLIGINE                 (MIDODRINE HYDROCHLORIDE) [Concomitant]
  6. RISUMIC               (AMEZINIUM METILSULFATE) [Concomitant]
  7. CALCIUM POLYSTYRENE SULFONATE [Concomitant]

REACTIONS (1)
  - RIGHT VENTRICULAR FAILURE [None]
